FAERS Safety Report 4635527-0 (Version None)
Quarter: 2005Q2

REPORT INFORMATION
  Report Type: 
  Country: None (occurrence: None)
  Receive Date: 20050414
  Receipt Date: 20050321
  Transmission Date: 20051028
  Serious: Yes (Disabling)
  Sender: FDA-Public Use
  Company Number: US-MERCK-0503USA03702

PATIENT
  Age: 79 Year
  Sex: Male
  Weight: 86 kg

DRUGS (6)
  1. ZETIA [Suspect]
     Indication: BLOOD CHOLESTEROL INCREASED
     Route: 048
     Dates: start: 20041001, end: 20050321
  2. LASIX [Concomitant]
     Route: 048
  3. TOPROL-XL [Concomitant]
     Indication: HEART RATE IRREGULAR
     Route: 048
  4. K-DUR 10 [Concomitant]
     Route: 048
  5. WELCHOL [Concomitant]
     Indication: BLOOD CHOLESTEROL INCREASED
     Route: 048
  6. COUMADIN [Concomitant]
     Indication: ATRIAL FIBRILLATION
     Route: 065

REACTIONS (8)
  - ARTHRALGIA [None]
  - BLOOD ALBUMIN DECREASED [None]
  - BLOOD UREA INCREASED [None]
  - CREATINE PHOSPHOKINASE DECREASED [None]
  - FATIGUE [None]
  - MUSCULAR WEAKNESS [None]
  - PAIN [None]
  - RED BLOOD CELL SEDIMENTATION RATE DECREASED [None]
